FAERS Safety Report 21156752 (Version 1)
Quarter: 2022Q3

REPORT INFORMATION
  Report Type: Spontaneous
  Country: PL (occurrence: PL)
  Receive Date: 20220801
  Receipt Date: 20220801
  Transmission Date: 20221027
  Serious: No
  Sender: FDA-Public Use
  Company Number: PL-PADAGIS-2022PAD00268

PATIENT

DRUGS (6)
  1. ACYCLOVIR [Suspect]
     Active Substance: ACYCLOVIR
     Indication: Pemphigoid
     Dosage: UNK
     Route: 065
  2. ACYCLOVIR [Suspect]
     Active Substance: ACYCLOVIR
     Indication: Erythema multiforme
     Dosage: UNK (SYSTEMIC TREATMENT WITH ACYCLOVIR)
     Route: 065
  3. FUSIDIC ACID\HYDROCORTISONE ACETATE [Suspect]
     Active Substance: FUSIDIC ACID\HYDROCORTISONE ACETATE
     Indication: Erythema multiforme
     Dosage: UNK
     Route: 061
  4. FUSIDIC ACID\HYDROCORTISONE ACETATE [Suspect]
     Active Substance: FUSIDIC ACID\HYDROCORTISONE ACETATE
     Indication: Pemphigoid
  5. SODIUM HYPOCHLORITE [Suspect]
     Active Substance: SODIUM HYPOCHLORITE
     Indication: Erythema multiforme
     Dosage: UNK
     Route: 061
  6. SODIUM HYPOCHLORITE [Suspect]
     Active Substance: SODIUM HYPOCHLORITE
     Indication: Pemphigoid

REACTIONS (2)
  - Drug ineffective for unapproved indication [Unknown]
  - Product use issue [Unknown]
